FAERS Safety Report 20881871 (Version 4)
Quarter: 2022Q3

REPORT INFORMATION
  Report Type: Report from Study
  Country: MX (occurrence: MX)
  Receive Date: 20220527
  Receipt Date: 20220731
  Transmission Date: 20221027
  Serious: No
  Sender: FDA-Public Use
  Company Number: MX-UCBSA-2022024595

PATIENT
  Sex: Female

DRUGS (2)
  1. ROTIGOTINE [Suspect]
     Active Substance: ROTIGOTINE
     Indication: Product used for unknown indication
     Dosage: NUBRENZA 4MG
     Route: 062
  2. ROTIGOTINE [Suspect]
     Active Substance: ROTIGOTINE
     Dosage: NUBRENZA 6MG
     Route: 062

REACTIONS (3)
  - Pruritus [Unknown]
  - Product adhesion issue [Unknown]
  - Incorrect dose administered [Unknown]
